FAERS Safety Report 13382142 (Version 1)
Quarter: 2017Q1

REPORT INFORMATION
  Report Type: Spontaneous
  Country: BR (occurrence: BR)
  Receive Date: 20170329
  Receipt Date: 20170329
  Transmission Date: 20170429
  Serious: Yes (Other)
  Sender: FDA-Public Use
  Company Number: PHHY2017BR044816

PATIENT
  Age: 55 Year
  Sex: Female
  Weight: 54 kg

DRUGS (1)
  1. ACLASTA [Suspect]
     Active Substance: ZOLEDRONIC ACID
     Indication: OSTEOPOROSIS
     Dosage: 5 MG, ONCE/SINGLE
     Route: 042

REACTIONS (5)
  - Dengue fever [Recovered/Resolved]
  - Weight bearing difficulty [Recovered/Resolved]
  - Arthralgia [Recovering/Resolving]
  - Pain [Recovered/Resolved]
  - Pain in extremity [Recovering/Resolving]

NARRATIVE: CASE EVENT DATE: 201601
